FAERS Safety Report 12365727 (Version 1)
Quarter: 2016Q2

REPORT INFORMATION
  Report Type: Spontaneous
  Country: US (occurrence: None)
  Receive Date: 20160512
  Receipt Date: 20160512
  Transmission Date: 20160815
  Serious: Yes (Disabling)
  Sender: FDA-Public Use
  Company Number: None

PATIENT
  Age: 39 Year
  Sex: Female
  Weight: 124.74 kg

DRUGS (3)
  1. LAP BAND [Concomitant]
  2. CIPRO [Suspect]
     Active Substance: CIPROFLOXACIN HYDROCHLORIDE
     Indication: URINARY TRACT INFECTION
     Route: 048
     Dates: end: 20090326
  3. CITALOPRAM, 20 MG [Suspect]
     Active Substance: CITALOPRAM HYDROBROMIDE
     Indication: DEPRESSION
     Route: 048
     Dates: end: 20090326

REACTIONS (5)
  - Visual impairment [None]
  - Panic attack [None]
  - Feeling cold [None]
  - Anxiety [None]
  - Hot flush [None]

NARRATIVE: CASE EVENT DATE: 20090326
